FAERS Safety Report 17709930 (Version 1)
Quarter: 2020Q2

REPORT INFORMATION
  Report Type: Spontaneous
  Country: CN (occurrence: CN)
  Receive Date: 20200427
  Receipt Date: 20200427
  Transmission Date: 20200714
  Serious: Yes (Other)
  Sender: FDA-Public Use
  Company Number: CN-ROCHE-2588028

PATIENT
  Age: 57 Year
  Sex: Female

DRUGS (4)
  1. BEVACIZUMAB. [Suspect]
     Active Substance: BEVACIZUMAB
     Indication: ADENOCARCINOMA OF THE CERVIX
     Route: 033
     Dates: start: 20200409
  2. LOBAPLATIN [Suspect]
     Active Substance: LOBAPLATIN
     Indication: ADENOCARCINOMA OF THE CERVIX
     Route: 033
     Dates: start: 20200401
  3. GEMCITABINE HYDROCHLORIDE. [Suspect]
     Active Substance: GEMCITABINE HYDROCHLORIDE
     Indication: ADENOCARCINOMA OF THE CERVIX
     Route: 041
     Dates: start: 20200401, end: 20200401
  4. GEMCITABINE HYDROCHLORIDE. [Suspect]
     Active Substance: GEMCITABINE HYDROCHLORIDE
     Route: 041
     Dates: start: 20200408

REACTIONS (3)
  - Off label use [Unknown]
  - Intentional product use issue [Unknown]
  - Bone marrow failure [Recovering/Resolving]

NARRATIVE: CASE EVENT DATE: 20200410
